FAERS Safety Report 7946686-6 (Version None)
Quarter: 2011Q4

REPORT INFORMATION
  Report Type: 
  Country: None (occurrence: None)
  Receive Date: 20111129
  Receipt Date: 20111122
  Transmission Date: 20120403
  Serious: No
  Sender: FDA-Public Use
  Company Number: US-PFIZER INC-2011286400

PATIENT
  Sex: Male
  Weight: 99.773 kg

DRUGS (7)
  1. SUTENT [Suspect]
     Dosage: 50 MG, 1 CAPSULE EVERY OTHER DAY
     Route: 048
  2. HYDROMORPHONE [Concomitant]
     Dosage: 4 MG, UNK
  3. FERROUS SULFATE [Concomitant]
     Dosage: 325 MG, UNK
  4. PRILOSEC [Concomitant]
     Dosage: 20 MG, UNK
  5. TUSSIN DM [Concomitant]
     Dosage: 60/1200
  6. FENTANYL [Concomitant]
     Dosage: 25 UG/HR
  7. CALTRATE 600 [Concomitant]
     Dosage: UNK

REACTIONS (1)
  - PLATELET COUNT DECREASED [None]
